FAERS Safety Report 6218030-6 (Version None)
Quarter: 2009Q2

REPORT INFORMATION
  Report Type: 
  Country: None (occurrence: None)
  Receive Date: 20090604
  Receipt Date: 20090604
  Transmission Date: 20091009
  Serious: Yes (Other)
  Sender: FDA-Public Use
  Company Number: None

PATIENT
  Sex: Female
  Weight: 79.62 kg

DRUGS (1)
  1. DOXYCYCLINE + MOXICYCLINE SEPTRA + TARCEVA [Suspect]

REACTIONS (1)
  - PANCREATITIS [None]
